FAERS Safety Report 13682272 (Version 1)
Quarter: 2017Q2

REPORT INFORMATION
  Report Type: Spontaneous
  Country: US (occurrence: US)
  Receive Date: 20170623
  Receipt Date: 20170623
  Transmission Date: 20170830
  Serious: Yes (Hospitalization, Other)
  Sender: FDA-Public Use
  Company Number: US-WEST-WARD PHARMACEUTICALS CORP.-2015-RO-00217RO

PATIENT
  Age: 49 Year
  Sex: Male

DRUGS (6)
  1. MYCOPHENOLATE MOFETIL. [Concomitant]
     Active Substance: MYCOPHENOLATE MOFETIL
     Indication: HEART TRANSPLANT
     Route: 065
  2. CEFOXITIN [Suspect]
     Active Substance: CEFOXITIN SODIUM
     Indication: MYCOBACTERIUM ABSCESSUS INFECTION
     Route: 065
  3. AZITHROMYCIN ANHYDROUS. [Suspect]
     Active Substance: AZITHROMYCIN ANHYDROUS
     Indication: MYCOBACTERIUM ABSCESSUS INFECTION
     Route: 065
  4. PREDNISONE. [Concomitant]
     Active Substance: PREDNISONE
     Indication: HEART TRANSPLANT
     Route: 065
  5. TACROLIMUS. [Interacting]
     Active Substance: TACROLIMUS
     Indication: HEART TRANSPLANT
     Route: 065
  6. AMIKACIN [Suspect]
     Active Substance: AMIKACIN
     Indication: MYCOBACTERIUM ABSCESSUS INFECTION
     Route: 065

REACTIONS (2)
  - Renal failure [Unknown]
  - Drug interaction [Unknown]
